FAERS Safety Report 7551833-4 (Version None)
Quarter: 2011Q2

REPORT INFORMATION
  Report Type: 
  Country: None (occurrence: None)
  Receive Date: 20110616
  Receipt Date: 20110527
  Transmission Date: 20111010
  Serious: No
  Sender: FDA-Public Use
  Company Number: US-B.I. PHARMACEUTICALS,INC./RIDGEFIELD-2011-BP-14207BP

PATIENT
  Age: 80 Year
  Sex: Female

DRUGS (11)
  1. ASCORBIC ACID [Concomitant]
     Indication: PROPHYLAXIS
     Route: 048
  2. BROMELAIN [Concomitant]
     Indication: PROPHYLAXIS
     Route: 048
  3. MAGNESIUM SULFATE [Concomitant]
     Indication: PROPHYLAXIS
     Route: 048
  4. SYNTHROID [Concomitant]
     Indication: HYPOTHYROIDISM
     Dosage: 25 MCG
     Route: 048
  5. QUERCETIN [Concomitant]
     Indication: PROPHYLAXIS
     Route: 048
  6. PRADAXA [Suspect]
     Indication: ATRIAL FIBRILLATION
     Dosage: 300 MG
     Route: 048
     Dates: start: 20110301
  7. VASOTEC [Concomitant]
     Indication: HYPERTENSION
     Dosage: 50 MG
     Route: 048
  8. VIT D [Concomitant]
     Indication: PROPHYLAXIS
     Route: 048
  9. GARLIC [Concomitant]
     Indication: PROPHYLAXIS
     Route: 048
  10. FISH OIL [Concomitant]
     Indication: PROPHYLAXIS
     Route: 048
  11. CALCIUM CARBONATE [Concomitant]
     Indication: PROPHYLAXIS
     Route: 048

REACTIONS (5)
  - BURNING SENSATION MUCOSAL [None]
  - DYSPEPSIA [None]
  - OESOPHAGEAL PAIN [None]
  - VULVOVAGINAL BURNING SENSATION [None]
  - PRURITUS [None]
